FAERS Safety Report 20219601 (Version 3)
Quarter: 2022Q1

REPORT INFORMATION
  Report Type: Spontaneous
  Country: US (occurrence: US)
  Receive Date: 20211222
  Receipt Date: 20220201
  Transmission Date: 20220423
  Serious: Yes (Other)
  Sender: FDA-Public Use
  Company Number: US-PFIZER INC-202101828610

PATIENT
  Age: 86 Year
  Sex: Female
  Weight: 64.399 kg

DRUGS (5)
  1. IBRANCE [Suspect]
     Active Substance: PALBOCICLIB
     Indication: Breast cancer metastatic
     Dosage: DAILY FOR 21 DAYS AND THEN OFF FOR 7 DAYS
     Route: 048
     Dates: start: 202008, end: 202111
  2. IBRANCE [Suspect]
     Active Substance: PALBOCICLIB
     Dosage: 100 MG, CYCLIC [DAILY 3 WEEKS ON, 1 WEEK OFF]
     Route: 048
  3. ZOMETA [Concomitant]
     Active Substance: ZOLEDRONIC ACID
     Dosage: (EVERY MONTH)
  4. EXEMESTANE [Concomitant]
     Active Substance: EXEMESTANE
     Dosage: UNK, DAILY (BY MOUTH DAILY)
     Route: 048
  5. XGEVA [Concomitant]
     Active Substance: DENOSUMAB
     Dosage: UNK  (ONCE A MONTH)

REACTIONS (6)
  - Second primary malignancy [Unknown]
  - Colon cancer [Unknown]
  - Thrombocytopenia [Recovered/Resolved]
  - Blood glucose increased [Not Recovered/Not Resolved]
  - Platelet count decreased [Unknown]
  - Abdominal pain upper [Unknown]

NARRATIVE: CASE EVENT DATE: 20210101
